FAERS Safety Report 4548450-7 (Version None)
Quarter: 2005Q1

REPORT INFORMATION
  Report Type: 
  Country: None (occurrence: None)
  Receive Date: 20050106
  Receipt Date: 20050106
  Transmission Date: 20050727
  Serious: Yes (Hospitalization)
  Sender: FDA-Public Use
  Company Number: None

PATIENT
  Age: 40 Year
  Sex: Female
  Weight: 63 kg

DRUGS (16)
  1. FLUDARABINE [Suspect]
     Indication: CHEMOTHERAPY
     Dosage: 56MG
     Dates: start: 20041104, end: 20041108
  2. CYTOXAN [Suspect]
     Indication: ACUTE MYELOID LEUKAEMIA
     Dosage: 1.6G
     Dates: start: 20041109, end: 20041110
  3. CYCLOSPORINE [Suspect]
     Dates: start: 20041104, end: 20041108
  4. ABELCET [Suspect]
     Dates: start: 20041109, end: 20041110
  5. ACTIGALL [Concomitant]
  6. NEORAL [Concomitant]
  7. ACYCLOVIR [Concomitant]
  8. VALCYTE [Concomitant]
  9. PAXIL [Concomitant]
  10. OXYCONTIN [Concomitant]
  11. NEURONTIN [Concomitant]
  12. KCL TAB [Concomitant]
  13. PROCARDIA XL [Concomitant]
  14. DILAUDID [Concomitant]
  15. PHENERGAN [Concomitant]
  16. PREVACID [Concomitant]

REACTIONS (3)
  - BLOOD CREATININE INCREASED [None]
  - BODY TEMPERATURE INCREASED [None]
  - CORD BLOOD TRANSPLANT THERAPY [None]
